FAERS Safety Report 13479998 (Version 3)
Quarter: 2017Q2

REPORT INFORMATION
  Report Type: Spontaneous
  Country: AU (occurrence: AU)
  Receive Date: 20170425
  Receipt Date: 20170623
  Transmission Date: 20170830
  Serious: Yes (Life-Threatening, Hospitalization, Other)
  Sender: FDA-Public Use
  Company Number: PHHY2017AU060901

PATIENT
  Age: 71 Year
  Sex: Female
  Weight: 94 kg

DRUGS (3)
  1. ENTRESTO [Suspect]
     Active Substance: SACUBITRIL\VALSARTAN
     Indication: CARDIAC FAILURE CONGESTIVE
  2. FUROSEMIDE. [Concomitant]
     Active Substance: FUROSEMIDE
     Indication: CARDIAC FAILURE
     Dosage: 4 MG, UNK
     Route: 048
  3. ENTRESTO [Suspect]
     Active Substance: SACUBITRIL\VALSARTAN
     Indication: CARDIAC FAILURE CHRONIC
     Dosage: 50 MG, UNK
     Route: 048
     Dates: start: 20161220, end: 20170116

REACTIONS (5)
  - Lethargy [Unknown]
  - Gamma-glutamyltransferase increased [Recovered/Resolved]
  - Blood triglycerides increased [Recovered/Resolved]
  - Renal disorder [Recovered/Resolved]
  - Globulins increased [Recovered/Resolved]

NARRATIVE: CASE EVENT DATE: 20170116
